FAERS Safety Report 7214512-9 (Version None)
Quarter: 2010Q4

REPORT INFORMATION
  Report Type: 
  Country: None (occurrence: None)
  Receive Date: 20101126
  Receipt Date: 20100217
  Transmission Date: 20110411
  Serious: Yes (Other)
  Sender: FDA-Public Use
  Company Number: WAES 0802USA01625

PATIENT
  Age: 54 Year
  Sex: Female
  Weight: 48.0813 kg

DRUGS (7)
  1. FOSAMAX [Suspect]
     Indication: OSTEOPENIA
     Dosage: 70 MG/WKY/PO
     Route: 048
     Dates: start: 20040703, end: 20070101
  2. FOSAMAX PLUS D [Suspect]
     Indication: BONE DENSITY DECREASED
     Dosage: PO
     Route: 048
     Dates: start: 20061101, end: 20070101
  3. DIOVAN HCT [Concomitant]
  4. PLAQUENIL [Concomitant]
  5. FOLIC ACID [Concomitant]
  6. METHOTREXATE [Concomitant]
  7. PREDNISONE TAB [Concomitant]

REACTIONS (12)
  - ACTINOMYCOSIS [None]
  - ALANINE AMINOTRANSFERASE INCREASED [None]
  - CATARACT [None]
  - DENTAL CARIES [None]
  - ERYTHEMA [None]
  - FATIGUE [None]
  - HYPERLIPIDAEMIA [None]
  - JAW DISORDER [None]
  - OSTEOMYELITIS [None]
  - OSTEONECROSIS OF JAW [None]
  - PERIODONTAL DISEASE [None]
  - RETINOPATHY HYPERTENSIVE [None]
